FAERS Safety Report 14304748 (Version 1)
Quarter: 2017Q4

REPORT INFORMATION
  Report Type: Spontaneous
  Country: DE (occurrence: DE)
  Receive Date: 20171219
  Receipt Date: 20171219
  Transmission Date: 20180321
  Serious: Yes (Other)
  Sender: FDA-Public Use
  Company Number: DE-OTSUKA-15464282

PATIENT
  Sex: Female
  Weight: 64 kg

DRUGS (1)
  1. ABILIFY [Suspect]
     Active Substance: ARIPIPRAZOLE
     Indication: SCHIZOAFFECTIVE DISORDER
     Dosage: 15 MG, BID
     Route: 048
     Dates: start: 20100819, end: 20110116

REACTIONS (3)
  - Panic attack [Recovered/Resolved]
  - Hyperhidrosis [Unknown]
  - Tremor [Recovered/Resolved]
